FAERS Safety Report 23246623 (Version 1)
Quarter: 2023Q4

REPORT INFORMATION
  Report Type: Spontaneous
  Country: JP (occurrence: JP)
  Receive Date: 20231130
  Receipt Date: 20231130
  Transmission Date: 20240109
  Serious: Yes (Life-Threatening, Other)
  Sender: FDA-Public Use
  Company Number: JP-PHATHOM PHARMACEUTICALS INC.-2023PHT00276

PATIENT
  Age: 7 Decade
  Sex: Male
  Weight: 60 kg

DRUGS (1)
  1. VONOPRAZAN FUMARATE [Suspect]
     Active Substance: VONOPRAZAN FUMARATE
     Indication: Prophylaxis against gastrointestinal ulcer
     Dosage: UNK
     Route: 065

REACTIONS (5)
  - Septic shock [Recovering/Resolving]
  - Portal venous gas [Recovering/Resolving]
  - Gastric pneumatosis [Recovering/Resolving]
  - Flatulence [Recovering/Resolving]
  - Off label use [Recovering/Resolving]
